FAERS Safety Report 25171968 (Version 1)
Quarter: 2025Q2

REPORT INFORMATION
  Report Type: Spontaneous
  Country: PL (occurrence: PL)
  Receive Date: 20250408
  Receipt Date: 20250408
  Transmission Date: 20250717
  Serious: Yes (Other)
  Sender: ABBVIE
  Company Number: PL-JNJFOC-20250384986

PATIENT
  Age: 56 Year
  Sex: Male

DRUGS (2)
  1. IMBRUVICA [Suspect]
     Active Substance: IBRUTINIB
     Indication: Chronic lymphocytic leukaemia
     Route: 048
  2. IMBRUVICA [Suspect]
     Active Substance: IBRUTINIB
     Indication: Chronic lymphocytic leukaemia
     Route: 048

REACTIONS (4)
  - Atrial fibrillation [Recovered/Resolved]
  - Atrial flutter [Unknown]
  - Cardiotoxicity [Unknown]
  - Cardioversion [Unknown]

NARRATIVE: CASE EVENT DATE: 20240614
